FAERS Safety Report 24024365 (Version 8)
Quarter: 2024Q3

REPORT INFORMATION
  Report Type: Report from Study
  Country: CN (occurrence: CN)
  Receive Date: 20240628
  Receipt Date: 20240710
  Transmission Date: 20241017
  Serious: No
  Sender: ROCHE
  Company Number: CN-ROCHE-2942635

PATIENT
  Age: 58 Year
  Sex: Female
  Weight: 75.0 kg

DRUGS (48)
  1. ALECTINIB [Suspect]
     Active Substance: ALECTINIB
     Indication: Non-small cell lung cancer metastatic
     Route: 048
     Dates: start: 20210715
  2. URSODIOL [Concomitant]
     Active Substance: URSODIOL
     Route: 048
     Dates: start: 20210714
  3. HERBALS\DIAMMONIUM GLYCYRRHIZINATE [Concomitant]
     Active Substance: HERBALS\DIAMMONIUM GLYCYRRHIZINATE
     Dosage: ENTERIC CAPSULES
     Route: 048
     Dates: start: 20210713, end: 202305
  4. PREDNISOLONE [Concomitant]
     Active Substance: PREDNISOLONE
     Route: 048
     Dates: start: 20210812, end: 20210907
  5. OMEPRAZOLE [Concomitant]
     Active Substance: OMEPRAZOLE
     Route: 048
     Dates: start: 20210812, end: 20210907
  6. ZOLEDRONIC ACID [Concomitant]
     Active Substance: ZOLEDRONIC ACID
     Route: 050
     Dates: start: 20210909, end: 20210909
  7. SOPHORA FLAVESCENS [Concomitant]
     Route: 050
     Dates: start: 20220309, end: 20220310
  8. SOPHORA FLAVESCENS [Concomitant]
     Route: 050
     Dates: start: 20220418, end: 20220421
  9. SOPHORA FLAVESCENS [Concomitant]
     Route: 050
     Dates: start: 20210713, end: 20220421
  10. UNSPECIFIED INGREDIENT [Concomitant]
     Active Substance: UNSPECIFIED INGREDIENT
     Route: 050
     Dates: start: 20220309, end: 20220310
  11. UNSPECIFIED INGREDIENT [Concomitant]
     Active Substance: UNSPECIFIED INGREDIENT
     Route: 050
     Dates: start: 20220418, end: 20220421
  12. HEPARIN SODIUM [Concomitant]
     Active Substance: HEPARIN SODIUM
     Route: 050
     Dates: start: 20220309, end: 20220310
  13. HEPARIN SODIUM [Concomitant]
     Active Substance: HEPARIN SODIUM
     Route: 050
     Dates: start: 20220418, end: 20220421
  14. SMILAX SPP. [Concomitant]
     Route: 050
     Dates: start: 20220309, end: 20220310
  15. SMILAX SPP. [Concomitant]
     Route: 050
     Dates: start: 20220418, end: 20220421
  16. CALCIUM GLUCONATE [Concomitant]
     Active Substance: CALCIUM GLUCONATE
     Route: 050
     Dates: start: 20220309, end: 20220310
  17. CALCIUM GLUCONATE [Concomitant]
     Active Substance: CALCIUM GLUCONATE
     Route: 050
     Dates: start: 20220418, end: 20220421
  18. CALCIUM GLUCONATE [Concomitant]
     Active Substance: CALCIUM GLUCONATE
     Route: 050
     Dates: start: 20210714, end: 20210716
  19. BAICALIN [Concomitant]
     Route: 050
     Dates: start: 20220309, end: 20220310
  20. BAICALIN [Concomitant]
     Route: 050
     Dates: start: 20220418, end: 20220421
  21. BUFFALO HORN [Concomitant]
     Route: 050
     Dates: start: 20220309, end: 20220310
  22. BUFFALO HORN [Concomitant]
     Route: 050
     Dates: start: 20220418, end: 20220421
  23. CHOLIC ACID [Concomitant]
     Active Substance: CHOLIC ACID
     Route: 050
     Dates: start: 20220309, end: 20220310
  24. CHOLIC ACID [Concomitant]
     Active Substance: CHOLIC ACID
     Route: 050
     Dates: start: 20220418, end: 20220421
  25. CONCHA MARGARITIFERA [Concomitant]
     Route: 050
     Dates: start: 20220309, end: 20220310
  26. CONCHA MARGARITIFERA [Concomitant]
     Route: 050
     Dates: start: 20220418, end: 20220421
  27. GARDENIA JASMINOIDES FRUIT [Concomitant]
     Active Substance: GARDENIA JASMINOIDES FRUIT
     Route: 050
     Dates: start: 20220309, end: 20220310
  28. GARDENIA JASMINOIDES FRUIT [Concomitant]
     Active Substance: GARDENIA JASMINOIDES FRUIT
     Route: 050
     Dates: start: 20220418, end: 20220421
  29. LONICERA JAPONICA FLOWER [Concomitant]
     Active Substance: LONICERA JAPONICA FLOWER
     Route: 050
     Dates: start: 20220309, end: 20220310
  30. LONICERA JAPONICA FLOWER [Concomitant]
     Active Substance: LONICERA JAPONICA FLOWER
     Route: 050
     Dates: start: 20220418, end: 20220421
  31. HERBALS [Concomitant]
     Active Substance: HERBALS
     Route: 050
     Dates: start: 20220523, end: 20220527
  32. MANNATIDE [Concomitant]
     Route: 050
     Dates: start: 20220705, end: 20220708
  33. COMPOUND KUSHEN INJECTION [Concomitant]
     Route: 050
     Dates: start: 20220705, end: 20220708
  34. COMPOUND KUSHEN INJECTION [Concomitant]
     Route: 050
     Dates: start: 20220815, end: 20220819
  35. COMPOUND KUSHEN INJECTION [Concomitant]
     Route: 050
     Dates: start: 20220919, end: 20220922
  36. RO-0622 [Concomitant]
     Active Substance: RO-0622
     Indication: Antiviral treatment
     Route: 048
     Dates: start: 20230105, end: 20230111
  37. CLARITHROMYCIN [Concomitant]
     Active Substance: CLARITHROMYCIN
     Indication: Antiviral treatment
     Route: 048
     Dates: start: 20230107, end: 20230111
  38. AMBROXOL HYDROCHLORIDE [Concomitant]
     Active Substance: AMBROXOL HYDROCHLORIDE
     Route: 042
     Dates: start: 20230107, end: 20230110
  39. COMPOUND GLYCYRRHIZA [Concomitant]
     Dosage: 1 TABLET
     Route: 048
     Dates: start: 20230104, end: 20230111
  40. ACETYLCYSTEINE [Concomitant]
     Active Substance: ACETYLCYSTEINE
     Route: 048
     Dates: start: 20230110, end: 20230111
  41. ESTAZOLAM [Concomitant]
     Active Substance: ESTAZOLAM
     Indication: Sedation
     Route: 048
     Dates: start: 20230111, end: 20230111
  42. ESTAZOLAM [Concomitant]
     Active Substance: ESTAZOLAM
     Route: 048
     Dates: start: 20220422, end: 20220427
  43. ESTAZOLAM [Concomitant]
     Active Substance: ESTAZOLAM
     Route: 048
     Dates: start: 20230602
  44. DIETARY SUPPLEMENT\OPHIOCORDYCEPS SINENSIS [Concomitant]
     Active Substance: DIETARY SUPPLEMENT\OPHIOCORDYCEPS SINENSIS
     Route: 048
     Dates: start: 20221027, end: 20221029
  45. LEUCOGEN [Concomitant]
     Active Substance: LEUCOGEN
     Route: 048
     Dates: start: 20210117, end: 20211120
  46. ZOLEDRONIC ACID [Concomitant]
     Active Substance: ZOLEDRONIC ACID
     Route: 050
     Dates: start: 20210715, end: 20210715
  47. CARBOPLATIN [Concomitant]
     Active Substance: CARBOPLATIN
  48. PEMETREXED DISODIUM [Concomitant]
     Active Substance: PEMETREXED DISODIUM

REACTIONS (6)
  - Blood bilirubin increased [Recovered/Resolved]
  - Hepatic steatosis [Recovered/Resolved]
  - Upper respiratory tract infection [Recovered/Resolved]
  - Blood creatinine increased [Not Recovered/Not Resolved]
  - Anaemia [Not Recovered/Not Resolved]
  - Neutrophil count decreased [Recovered/Resolved]

NARRATIVE: CASE EVENT DATE: 20210810
